APPROVED DRUG PRODUCT: PROCHLORPERAZINE MALEATE
Active Ingredient: PROCHLORPERAZINE MALEATE
Strength: EQ 10MG BASE
Dosage Form/Route: TABLET;ORAL
Application: A040120 | Product #002
Applicant: TEVA PHARMACEUTICALS USA
Approved: Jul 11, 1996 | RLD: No | RS: No | Type: DISCN